FAERS Safety Report 19705309 (Version 6)
Quarter: 2021Q4

REPORT INFORMATION
  Report Type: Report from Study
  Country: NO (occurrence: NO)
  Receive Date: 20210816
  Receipt Date: 20211022
  Transmission Date: 20220303
  Serious: Yes (Death, Life-Threatening, Hospitalization, Other)
  Sender: FDA-Public Use
  Company Number: NVSC2021NO169178

PATIENT
  Age: 64 Year
  Sex: Female

DRUGS (12)
  1. RYDAPT [Suspect]
     Active Substance: MIDOSTAURIN
     Indication: Acute myeloid leukaemia
     Dosage: 100 MG, QD
     Route: 065
     Dates: start: 20210528
  2. RYDAPT [Suspect]
     Active Substance: MIDOSTAURIN
     Dosage: 100 MG, QD (LAST DOSE 21 JUL 2021)
     Route: 065
     Dates: start: 20210708
  3. CYTARABINE [Suspect]
     Active Substance: CYTARABINE
     Indication: Acute myeloid leukaemia
     Dosage: 390 MG, QD
     Route: 065
     Dates: start: 20210521
  4. CYTARABINE [Suspect]
     Active Substance: CYTARABINE
     Dosage: 3800 MG, QD LAST DOSE (06 JUL 2021)
     Route: 065
     Dates: start: 20210701
  5. DAUNORUBICIN [Suspect]
     Active Substance: DAUNORUBICIN
     Indication: Product used for unknown indication
     Dosage: 115 MG, QD
     Route: 065
     Dates: start: 20210521
  6. PENICILLIN [Concomitant]
     Active Substance: PENICILLIN
     Indication: Product used for unknown indication
     Route: 065
  7. CLINDAMYCIN PHOSPHATE [Concomitant]
     Active Substance: CLINDAMYCIN PHOSPHATE
     Indication: Product used for unknown indication
     Dosage: UNK
     Route: 048
  8. CIPROFLOXACIN [Concomitant]
     Active Substance: CIPROFLOXACIN
     Indication: Product used for unknown indication
     Dosage: UNK
     Route: 048
  9. SODIUM PHOSPHATE, MONOBASIC, ANHYDROUS [Concomitant]
     Active Substance: SODIUM PHOSPHATE, MONOBASIC, ANHYDROUS
     Indication: Product used for unknown indication
     Dosage: UNK
     Route: 048
  10. METOPROLOL [Concomitant]
     Active Substance: METOPROLOL
     Indication: Product used for unknown indication
     Dosage: 5 MG
     Route: 042
  11. METOPROLOL [Concomitant]
     Active Substance: METOPROLOL
     Dosage: 2.5 MG
     Route: 042
  12. POSACONAZOLE [Concomitant]
     Active Substance: POSACONAZOLE
     Indication: Product used for unknown indication
     Dosage: UNK
     Route: 048

REACTIONS (16)
  - Sepsis [Fatal]
  - Neutropenic sepsis [Recovered/Resolved]
  - Acute respiratory failure [Unknown]
  - Sepsis [Recovered/Resolved]
  - Febrile neutropenia [Recovered/Resolved]
  - Body temperature increased [Unknown]
  - Enterococcal infection [Unknown]
  - Staphylococcal bacteraemia [Unknown]
  - Multiple organ dysfunction syndrome [Unknown]
  - Atrial fibrillation [Recovered/Resolved]
  - Chills [Unknown]
  - Dehydration [Unknown]
  - Anaemia [Unknown]
  - Hypotension [Recovering/Resolving]
  - Tachycardia [Unknown]
  - Pyrexia [Unknown]

NARRATIVE: CASE EVENT DATE: 20210623
